FAERS Safety Report 23384970 (Version 3)
Quarter: 2024Q1

REPORT INFORMATION
  Report Type: Spontaneous
  Country: US (occurrence: None)
  Receive Date: 20240109
  Receipt Date: 20240208
  Transmission Date: 20240410
  Serious: No
  Sender: FDA-Public Use
  Company Number: 2024A005993

PATIENT
  Sex: Female

DRUGS (1)
  1. BYDUREON BCISE [Suspect]
     Active Substance: EXENATIDE
     Dosage: 2.0MG UNKNOWN

REACTIONS (6)
  - Injection site mass [Unknown]
  - Neck mass [Unknown]
  - Insomnia [Unknown]
  - Pain of skin [Unknown]
  - Injection site swelling [Unknown]
  - Device difficult to use [Unknown]
